FAERS Safety Report 5840387-6 (Version None)
Quarter: 2008Q3

REPORT INFORMATION
  Report Type: 
  Country: None (occurrence: None)
  Receive Date: 20080807
  Receipt Date: 20080118
  Transmission Date: 20090109
  Serious: Yes (Other)
  Sender: FDA-Public Use
  Company Number: FPI-08-MEN-0055

PATIENT
  Age: 26 Year
  Sex: Female

DRUGS (1)
  1. MENOPUR [Suspect]
     Indication: INFERTILITY
     Dates: start: 20071001

REACTIONS (1)
  - ABORTION SPONTANEOUS [None]
